FAERS Safety Report 14754469 (Version 1)
Quarter: 2018Q2

REPORT INFORMATION
  Report Type: Spontaneous
  Country: GB (occurrence: GB)
  Receive Date: 20180412
  Receipt Date: 20180412
  Transmission Date: 20180711
  Serious: Yes (Other)
  Sender: FDA-Public Use
  Company Number: GB-ASTRAZENECA-2018SE43129

PATIENT
  Age: 63 Year
  Sex: Female
  Weight: 52.6 kg

DRUGS (3)
  1. NEFOPAM [Concomitant]
     Active Substance: NEFOPAM
  2. ELLESTE-SOLO [Concomitant]
  3. OMEPRAZOLE. [Suspect]
     Active Substance: OMEPRAZOLE
     Indication: MYOCARDITIS
     Dosage: 20.0MG UNKNOWN
     Route: 048
     Dates: start: 20180315, end: 20180320

REACTIONS (3)
  - Syncope [Recovered/Resolved with Sequelae]
  - Nausea [Recovered/Resolved with Sequelae]
  - Dizziness [Recovered/Resolved with Sequelae]

NARRATIVE: CASE EVENT DATE: 20180317
